FAERS Safety Report 8666449 (Version 2)
Quarter: 2013Q1

REPORT INFORMATION
  Report Type: Spontaneous
  Country: GB (occurrence: GB)
  Receive Date: 20120716
  Receipt Date: 20130108
  Transmission Date: 20140127
  Serious: Yes (Other)
  Sender: FDA-Public Use
  Company Number: GB-GLAXOSMITHKLINE-B0813108A

PATIENT
  Age: 68 Year
  Sex: Male

DRUGS (9)
  1. ONDANSETRON [Suspect]
     Indication: NAUSEA
     Route: 048
     Dates: start: 20120618, end: 20120618
  2. MST CONTINUS [Concomitant]
     Indication: PAIN
     Dosage: 80MG PER DAY
     Route: 048
     Dates: start: 201205
  3. ORAMORPH [Concomitant]
     Indication: PAIN
     Route: 048
     Dates: start: 201205
  4. OMEPRAZOLE [Concomitant]
     Indication: GASTRIC DISORDER
     Dosage: 20MG PER DAY
     Route: 048
     Dates: start: 201205
  5. DICLOFENAC [Concomitant]
     Indication: PAIN
     Dosage: 150MG PER DAY
     Route: 048
     Dates: start: 201205
  6. CYCLIZINE [Concomitant]
     Indication: NAUSEA
     Dosage: 150MG PER DAY
     Route: 048
     Dates: start: 201205
  7. SENNA [Concomitant]
     Indication: CONSTIPATION
     Dosage: 2IUAX PER DAY
     Route: 048
     Dates: start: 201205
  8. MOVICOL [Concomitant]
     Indication: CONSTIPATION
     Dosage: 2IUAX PER DAY
     Route: 048
     Dates: start: 201205
  9. DEXAMETHASONE [Concomitant]
     Indication: METASTASES TO CENTRAL NERVOUS SYSTEM
     Route: 048
     Dates: start: 201205

REACTIONS (4)
  - Muscle spasms [Recovered/Resolved]
  - Tremor [Recovered/Resolved]
  - Agitation [Recovered/Resolved]
  - Restlessness [Recovered/Resolved]
